FAERS Safety Report 15947502 (Version 1)
Quarter: 2019Q1

REPORT INFORMATION
  Report Type: Report from Study
  Country: US (occurrence: US)
  Receive Date: 20190211
  Receipt Date: 20190211
  Transmission Date: 20190417
  Serious: Yes (Hospitalization)
  Sender: FDA-Public Use
  Company Number: US-MYLANLABS-2019M1009806

PATIENT
  Sex: Male

DRUGS (2)
  1. TRIAMCINOLONE [Suspect]
     Active Substance: TRIAMCINOLONE
     Indication: CLUSTER HEADACHE
     Dosage: HE RECEIVED A TOTAL OF 30 INJECTIONS FOR HVSON.
     Route: 050
  2. LIDOCAINE. [Concomitant]
     Active Substance: LIDOCAINE
     Indication: CLUSTER HEADACHE
     Dosage: HE RECEIVED A TOTAL OF 30 INJECTIONS FOR HVSON
     Route: 050

REACTIONS (1)
  - Osteonecrosis [Unknown]
